FAERS Safety Report 23853408 (Version 2)
Quarter: 2024Q2

REPORT INFORMATION
  Report Type: Spontaneous
  Country: US (occurrence: US)
  Receive Date: 20240514
  Receipt Date: 20240521
  Transmission Date: 20240716
  Serious: Yes (Hospitalization, Other)
  Sender: FDA-Public Use
  Company Number: US-SUN PHARMACEUTICAL INDUSTRIES LTD-2024R1-446222

PATIENT
  Age: 70 Year
  Sex: Female

DRUGS (8)
  1. DIGOXIN [Suspect]
     Active Substance: DIGOXIN
     Indication: Atrial flutter
     Dosage: 0.25 MILLIGRAM, TWO DOSES
     Route: 065
  2. APIXABAN [Suspect]
     Active Substance: APIXABAN
     Indication: Atrial flutter
     Dosage: 5 MILLIGRAM, BID
     Route: 065
  3. ATORVASTATIN [Suspect]
     Active Substance: ATORVASTATIN
     Indication: Atrial flutter
     Dosage: 80 MILLIGRAM
     Route: 065
  4. METOPROLOL [Suspect]
     Active Substance: METOPROLOL
     Indication: Atrial flutter
     Dosage: 5 MILLIGRAM, QID
     Route: 042
  5. AMIODARONE [Suspect]
     Active Substance: AMIODARONE
     Indication: Atrial flutter
     Dosage: 150 MILLIGRAM
     Route: 042
  6. AMIODARONE [Suspect]
     Active Substance: AMIODARONE
     Dosage: 1 MG/MIN
     Route: 042
  7. LASIX [Suspect]
     Active Substance: FUROSEMIDE
     Indication: Atrial flutter
     Dosage: 40 MILLIGRAM, BID
     Route: 042
  8. PLAVIX [Suspect]
     Active Substance: CLOPIDOGREL BISULFATE
     Indication: Atrial flutter
     Dosage: 75 MILLIGRAM
     Route: 065

REACTIONS (4)
  - Electrocardiogram QT prolonged [Recovering/Resolving]
  - Torsade de pointes [Recovering/Resolving]
  - Ventricular tachycardia [Recovering/Resolving]
  - Therapeutic response decreased [Unknown]
